FAERS Safety Report 4672674-1 (Version None)
Quarter: 2005Q2

REPORT INFORMATION
  Report Type: 
  Country: None (occurrence: None)
  Receive Date: 20050524
  Receipt Date: 20050513
  Transmission Date: 20051028
  Serious: Yes (Hospitalization, Disabling, Other)
  Sender: FDA-Public Use
  Company Number: US-JNJFOC-20050200328

PATIENT
  Sex: Female
  Weight: 55.79 kg

DRUGS (11)
  1. REMICADE [Suspect]
     Route: 042
  2. REMICADE [Suspect]
     Route: 042
  3. REMICADE [Suspect]
     Route: 042
  4. REMICADE [Suspect]
     Route: 042
  5. REMICADE [Suspect]
     Route: 042
  6. REMICADE [Suspect]
     Route: 042
  7. REMICADE [Suspect]
     Route: 042
  8. REMICADE [Suspect]
     Indication: CROHN'S DISEASE
     Route: 042
  9. IMODIUM [Suspect]
     Indication: CROHN'S DISEASE
  10. ANTIBIOTICS [Suspect]
     Indication: CROHN'S DISEASE
  11. PREDNISONE [Suspect]
     Indication: CROHN'S DISEASE

REACTIONS (2)
  - B-CELL SMALL LYMPHOCYTIC LYMPHOMA [None]
  - CROHN'S DISEASE [None]
